FAERS Safety Report 11082467 (Version 4)
Quarter: 2015Q3

REPORT INFORMATION
  Report Type: Spontaneous
  Country: GB (occurrence: GB)
  Receive Date: 20150501
  Receipt Date: 20150914
  Transmission Date: 20151125
  Serious: Yes (Other)
  Sender: FDA-Public Use
  Company Number: PHFR2015GB003448

PATIENT
  Age: 54 Year
  Sex: Male
  Weight: 68 kg

DRUGS (1)
  1. CLOZARIL [Suspect]
     Active Substance: CLOZAPINE
     Indication: SCHIZOPHRENIA
     Dosage: 500 MG, QD
     Route: 048
     Dates: start: 201306, end: 201504

REACTIONS (6)
  - Malaise [Recovered/Resolved]
  - Hypotension [Recovered/Resolved]
  - Cardiac failure [Recovered/Resolved]
  - Dyspnoea [Recovered/Resolved]
  - Fatigue [Recovered/Resolved]
  - Myocarditis [Recovered/Resolved with Sequelae]

NARRATIVE: CASE EVENT DATE: 201503
